FAERS Safety Report 5305313-7 (Version None)
Quarter: 2007Q2

REPORT INFORMATION
  Report Type: 
  Country: None (occurrence: None)
  Receive Date: 20070424
  Receipt Date: 20070412
  Transmission Date: 20071010
  Serious: Yes (Other)
  Sender: FDA-Public Use
  Company Number: PHMT2007CA00999

PATIENT
  Age: 79 Year
  Sex: Female

DRUGS (1)
  1. DIOVAN HCT [Suspect]
     Indication: HYPERTENSION
     Dosage: 160/25
     Route: 048
     Dates: start: 20061201, end: 20070325

REACTIONS (4)
  - FLUID RETENTION [None]
  - FRACTURE [None]
  - HYPERTENSION [None]
  - SYNCOPE [None]
